FAERS Safety Report 14049995 (Version 1)
Quarter: 2017Q4

REPORT INFORMATION
  Report Type: Report from Study
  Country: US (occurrence: US)
  Receive Date: 20171005
  Receipt Date: 20171005
  Transmission Date: 20180321
  Serious: No
  Sender: FDA-Public Use
  Company Number: US-AMGEN-USASL2016178007

PATIENT
  Age: 63 Year
  Sex: Female
  Weight: 53.97 kg

DRUGS (3)
  1. PROLIA [Suspect]
     Active Substance: DENOSUMAB
     Indication: OSTEOPOROSIS POSTMENOPAUSAL
     Dosage: UNK
     Route: 065
  2. VITAMIN D3 [Concomitant]
     Active Substance: CHOLECALCIFEROL
     Dosage: UNK, BID
  3. CALTRATE [Concomitant]
     Active Substance: CALCIUM CARBONATE
     Dosage: 600 MG, BID

REACTIONS (2)
  - Drug effect incomplete [Unknown]
  - Rosacea [Unknown]
